FAERS Safety Report 4562787-7 (Version None)
Quarter: 2005Q1

REPORT INFORMATION
  Report Type: 
  Country: None (occurrence: None)
  Receive Date: 20050121
  Receipt Date: 20050112
  Transmission Date: 20050727
  Serious: Yes (Hospitalization)
  Sender: FDA-Public Use
  Company Number: 2005012827

PATIENT
  Age: 69 Year
  Sex: Female

DRUGS (3)
  1. TORVAST (ATORVASTATIN) [Suspect]
     Dosage: 10 MG (1 IN 1 D ORAL)
     Route: 048
     Dates: start: 20041110, end: 20041110
  2. CLAVULIN (AMOXICILLIN TRIHYDRATE, CLAVULANATE POTASSIUM) [Suspect]
     Dosage: 2000 MG (1000 MG 2 IN 1 D) ORAL
     Route: 048
     Dates: start: 20041024, end: 20041109
  3. AMIODARONE HCL [Suspect]
     Dosage: 200 MG (200 MG 1 IN 1 D) ORAL
     Route: 048
     Dates: start: 20040901, end: 20041114

REACTIONS (3)
  - BILIARY TRACT DISORDER [None]
  - HEPATITIS CHOLESTATIC [None]
  - PRURITUS [None]
